FAERS Safety Report 16563699 (Version 1)
Quarter: 2019Q3

REPORT INFORMATION
  Report Type: Spontaneous
  Country: US (occurrence: US)
  Receive Date: 20190712
  Receipt Date: 20190712
  Transmission Date: 20191004
  Serious: Yes (Other)
  Sender: FDA-Public Use
  Company Number: US-TORRENT-00006883

PATIENT
  Sex: Female
  Weight: 81 kg

DRUGS (3)
  1. RANITIDINE. [Concomitant]
     Active Substance: RANITIDINE
     Indication: ABDOMINAL DISCOMFORT
     Dosage: ONCE A DAY AT BED TIME
  2. BUSPIRONE [Concomitant]
     Active Substance: BUSPIRONE HYDROCHLORIDE
     Indication: DEPRESSION
     Dosage: ONE TABLET TWICE A DAY
  3. AMLODIPINE, VALSARTAN AND HYDROCHLOROTHIAZIDE TABLETS, FILM COATED [Suspect]
     Active Substance: AMLODIPINE BESYLATE\HYDROCHLOROTHIAZIDE\VALSARTAN
     Indication: HYPERTENSION
     Dosage: GENERIC OF EXFORGE HCTZ 10/160/25 MG TABLET. ONCE A DAY

REACTIONS (1)
  - Renal failure [Not Recovered/Not Resolved]
